FAERS Safety Report 5107570-9 (Version None)
Quarter: 2006Q3

REPORT INFORMATION
  Report Type: 
  Country: None (occurrence: None)
  Receive Date: 20060913
  Receipt Date: 20060913
  Transmission Date: 20061208
  Serious: Yes (Hospitalization)
  Sender: FDA-Public Use
  Company Number: None

PATIENT
  Sex: Male

DRUGS (13)
  1. HEPARIN [Suspect]
     Indication: PROPHYLAXIS
     Dosage: PER NOMOGRAM  IV
     Route: 042
     Dates: start: 20060111, end: 20060118
  2. ALPRAZOLAM [Concomitant]
  3. BUPROPION HCL [Concomitant]
  4. CALCIUM ACETATE [Concomitant]
  5. CEFAZOLIN [Concomitant]
  6. FUROSEMIDE [Concomitant]
  7. METOCLOPRAMIDE [Concomitant]
  8. MORPHINE [Concomitant]
  9. OMEPRAZOLE [Concomitant]
  10. OXYBUTYNIN [Concomitant]
  11. QUININE SULFATE [Concomitant]
  12. SIMVASTATIN [Concomitant]
  13. WARFARIN SODIUM [Concomitant]

REACTIONS (2)
  - HAEMATOCRIT DECREASED [None]
  - HAEMOGLOBIN DECREASED [None]
